FAERS Safety Report 13590390 (Version 1)
Quarter: 2017Q2

REPORT INFORMATION
  Report Type: Spontaneous
  Country: CA (occurrence: CA)
  Receive Date: 20170530
  Receipt Date: 20170530
  Transmission Date: 20170830
  Serious: Yes (Other)
  Sender: FDA-Public Use
  Company Number: CA-SEPTODONT-201704038

PATIENT

DRUGS (1)
  1. LIDOCAINE HCL 2% WITH EPINEPHRINE 1:100,000 [Suspect]
     Active Substance: EPINEPHRINE BITARTRATE\LIDOCAINE HYDROCHLORIDE
     Indication: LOCAL ANAESTHESIA
     Dosage: 1 - 2 CARTRIDGES ADMINISTERED
     Route: 004

REACTIONS (5)
  - Vestibular disorder [Unknown]
  - Rash [Unknown]
  - Injection site necrosis [Unknown]
  - Pyrexia [Unknown]
  - Oral mucosal exfoliation [Unknown]
